FAERS Safety Report 15275403 (Version 4)
Quarter: 2019Q1

REPORT INFORMATION
  Report Type: Spontaneous
  Country: US (occurrence: US)
  Receive Date: 20180814
  Receipt Date: 20190326
  Transmission Date: 20190417
  Serious: No
  Sender: FDA-Public Use
  Company Number: US-BIOGEN-2018BI00607701

PATIENT
  Age: 27 Year
  Sex: Female

DRUGS (2)
  1. PLEGRIDY [Suspect]
     Active Substance: PEGINTERFERON BETA-1A
     Route: 050
     Dates: start: 20180706
  2. PLEGRIDY [Suspect]
     Active Substance: PEGINTERFERON BETA-1A
     Indication: MULTIPLE SCLEROSIS
     Route: 050
     Dates: start: 20180706

REACTIONS (9)
  - Pyrexia [Unknown]
  - Injection site reaction [Recovered/Resolved]
  - Chills [Unknown]
  - Nausea [Unknown]
  - Abdominal pain upper [Unknown]
  - Influenza like illness [Unknown]
  - Diarrhoea [Unknown]
  - Injection site erythema [Unknown]
  - Myalgia [Recovered/Resolved]

NARRATIVE: CASE EVENT DATE: 20180706
